FAERS Safety Report 16047937 (Version 2)
Quarter: 2019Q2

REPORT INFORMATION
  Report Type: Report from Study
  Country: US (occurrence: US)
  Receive Date: 20190307
  Receipt Date: 20190401
  Transmission Date: 20190711
  Serious: Yes (Other)
  Sender: FDA-Public Use
  Company Number: US-BRISTOL-MYERS SQUIBB COMPANY-BMS-2019-022720

PATIENT
  Sex: Female

DRUGS (2)
  1. NIVOLUMAB [Suspect]
     Active Substance: NIVOLUMAB
     Indication: RENAL CELL CARCINOMA
     Dosage: UNK, Q2WK
     Route: 042
     Dates: end: 20190218
  2. YERVOY [Suspect]
     Active Substance: IPILIMUMAB
     Indication: RENAL CELL CARCINOMA
     Dosage: UNK, Q2WK
     Route: 042

REACTIONS (29)
  - Urinary tract infection [Unknown]
  - Alopecia [Unknown]
  - Dizziness [Unknown]
  - Hypothalamo-pituitary disorder [Unknown]
  - Headache [Unknown]
  - Oral pain [Unknown]
  - Weight decreased [Unknown]
  - Sleep disorder [Unknown]
  - Haemoglobin decreased [Unknown]
  - Drug ineffective [Unknown]
  - Head discomfort [Unknown]
  - Oral disorder [Unknown]
  - Pain [Unknown]
  - Gait disturbance [Unknown]
  - Weight increased [Unknown]
  - Hypersomnia [Unknown]
  - Lip dry [Unknown]
  - Dry eye [Unknown]
  - Hypertension [Unknown]
  - Cystitis [Unknown]
  - Pollakiuria [Unknown]
  - Dry mouth [Unknown]
  - Renal disorder [Unknown]
  - Lung disorder [Unknown]
  - Hair colour changes [Unknown]
  - Pituitary enlargement [Recovering/Resolving]
  - Macule [Unknown]
  - Feeling abnormal [Unknown]
  - Vitreous floaters [Recovered/Resolved]
